FAERS Safety Report 21199955 (Version 1)
Quarter: 2022Q3

REPORT INFORMATION
  Report Type: Spontaneous
  Country: ES (occurrence: ES)
  Receive Date: 20220811
  Receipt Date: 20220811
  Transmission Date: 20221026
  Serious: Yes (Other)
  Sender: FDA-Public Use
  Company Number: None

PATIENT
  Age: 71 Year
  Sex: Female

DRUGS (2)
  1. BETAMETHASONE DIPROPIONATE\GENTAMICIN SULFATE [Suspect]
     Active Substance: BETAMETHASONE DIPROPIONATE\GENTAMICIN SULFATE
     Indication: Ingrowing nail
     Dosage: 0.5 MILLIGRAM/GRAM (MG/G) + 1 MG/G, 1 TUBE OF 50 G
     Route: 061
     Dates: start: 202206, end: 20220623
  2. FUSIDIC ACID [Suspect]
     Active Substance: FUSIDIC ACID
     Indication: Ingrowing nail
     Dosage: ALSO REPORTED AS FUSIDIC ACID (ISDIN), STRENGTH: 20 MILLIGRAM/GRAM (MG/G), 1 TUBE OF 15 G
     Route: 061
     Dates: start: 202206, end: 20220623

REACTIONS (2)
  - Wrong drug [Recovered/Resolved]
  - Skin infection [Recovered/Resolved]

NARRATIVE: CASE EVENT DATE: 20220623
